FAERS Safety Report 11840396 (Version 1)
Quarter: 2015Q4

REPORT INFORMATION
  Report Type: Spontaneous
  Country: US (occurrence: US)
  Receive Date: 20151216
  Receipt Date: 20151216
  Transmission Date: 20160305
  Serious: No
  Sender: FDA-Public Use
  Company Number: US-GALDERMA-US15007720

PATIENT
  Age: 40 Year
  Sex: Female

DRUGS (4)
  1. MIRVASO [Suspect]
     Active Substance: BRIMONIDINE TARTRATE
     Indication: ROSACEA
     Dosage: 0.33%
     Route: 061
     Dates: start: 20131001, end: 20150928
  2. METROGEL [Concomitant]
     Active Substance: METRONIDAZOLE
     Indication: ACNE
     Dosage: 1%
     Route: 061
     Dates: start: 20140103
  3. LESSINA (ETHINYL ESTRADIOL AND LEVONORGESTREL) [Concomitant]
     Indication: CONTRACEPTION
     Route: 048
  4. UNKNOWN MOISTURIZER [Concomitant]
     Route: 061

REACTIONS (6)
  - Skin burning sensation [Recovered/Resolved]
  - Rash papular [Recovered/Resolved]
  - Erythema [Recovered/Resolved]
  - Skin exfoliation [Not Recovered/Not Resolved]
  - Pruritus [Recovered/Resolved]
  - Inappropriate schedule of drug administration [Recovered/Resolved]

NARRATIVE: CASE EVENT DATE: 201508
